FAERS Safety Report 6313479-5 (Version None)
Quarter: 2009Q3

REPORT INFORMATION
  Report Type: 
  Country: None (occurrence: None)
  Receive Date: 20090814
  Receipt Date: 20090717
  Transmission Date: 20100115
  Serious: Yes (Other)
  Sender: FDA-Public Use
  Company Number: 6052325

PATIENT
  Age: 26 Year
  Sex: Female

DRUGS (3)
  1. LEVOTHYROXINE SODIUM [Suspect]
     Indication: HYPOTHYROIDISM
     Dosage: 75 MCG (75 MCG, 1 IN 1 D) ORAL
     Route: 048
     Dates: start: 19900101, end: 20090517
  2. RISPERDAL (ORAL DROPS) (RISPERIDONE) [Suspect]
     Indication: DRUG USE FOR UNKNOWN INDICATION
     Dosage: 0.5 MG (0.5 MG, 1 IN 1 D) ORAL
     Route: 048
     Dates: start: 19900101, end: 20090517
  3. NEULEPTIL (ORAL DROPS) (PERICIAZINE) [Suspect]
     Indication: DRUG USE FOR UNKNOWN INDICATION
     Dosage: 20 DROPS (1 IN 1 D) ORAL
     Route: 048
     Dates: start: 19900101, end: 20090517

REACTIONS (5)
  - ALANINE AMINOTRANSFERASE INCREASED [None]
  - ASPARTATE AMINOTRANSFERASE INCREASED [None]
  - BLOOD CHOLESTEROL INCREASED [None]
  - GAMMA-GLUTAMYLTRANSFERASE INCREASED [None]
  - LIVER DISORDER [None]
